FAERS Safety Report 6749415-7 (Version None)
Quarter: 2010Q2

REPORT INFORMATION
  Report Type: 
  Country: None (occurrence: None)
  Receive Date: 20100527
  Receipt Date: 20100527
  Transmission Date: 20101027
  Serious: No
  Sender: FDA-Public Use
  Company Number: None

PATIENT
  Age: 73 Year
  Sex: Male
  Weight: 71.2147 kg

DRUGS (1)
  1. OMEPRAZOLE [Suspect]
     Indication: DRUG THERAPY
     Dosage: 1 CAPSULE DAILY
     Dates: start: 20100408, end: 20100511

REACTIONS (1)
  - CHEST PAIN [None]
